FAERS Safety Report 9674617 (Version 1)
Quarter: 2013Q4

REPORT INFORMATION
  Report Type: Spontaneous
  Country: US (occurrence: None)
  Receive Date: 20131106
  Receipt Date: 20131106
  Transmission Date: 20140711
  Serious: No
  Sender: FDA-Public Use
  Company Number: None

PATIENT
  Age: 23 Year
  Sex: Female
  Weight: 68.04 kg

DRUGS (1)
  1. MONONESSA [Suspect]
     Indication: OVARIAN CYST
     Dates: start: 20131008, end: 20131101

REACTIONS (2)
  - Deep vein thrombosis [None]
  - Musculoskeletal stiffness [None]
